FAERS Safety Report 10594985 (Version 1)
Quarter: 2014Q4

REPORT INFORMATION
  Report Type: Report from Study
  Country: US (occurrence: US)
  Receive Date: 20141120
  Receipt Date: 20141120
  Transmission Date: 20150529
  Serious: Yes (Hospitalization)
  Sender: FDA-Public Use
  Company Number: US-BIOGENIDEC-2014BI114937

PATIENT
  Sex: Female

DRUGS (1)
  1. TECFIDERA [Suspect]
     Active Substance: DIMETHYL FUMARATE
     Indication: MULTIPLE SCLEROSIS
     Route: 048
     Dates: start: 201402

REACTIONS (5)
  - Ear infection viral [Unknown]
  - Nausea [Unknown]
  - Nuclear magnetic resonance imaging abnormal [Unknown]
  - Malaise [Unknown]
  - Multiple sclerosis relapse [Unknown]
